FAERS Safety Report 25735383 (Version 1)
Quarter: 2025Q3

REPORT INFORMATION
  Report Type: Spontaneous
  Country: EU (occurrence: EU)
  Receive Date: 20250828
  Receipt Date: 20250828
  Transmission Date: 20251021
  Serious: Yes (Death, Other)
  Sender: HIKMA
  Company Number: None

PATIENT
  Age: 64 Year
  Sex: Female
  Weight: 98 kg

DRUGS (5)
  1. CARBOPLATIN [Suspect]
     Active Substance: CARBOPLATIN
     Indication: Endometrial cancer
     Route: 042
     Dates: start: 20250418, end: 20250418
  2. CARBOPLATIN [Suspect]
     Active Substance: CARBOPLATIN
     Route: 042
     Dates: start: 20250516, end: 20250516
  3. JEMPERLI [Suspect]
     Active Substance: DOSTARLIMAB-GXLY
     Indication: Endometrial cancer
     Route: 042
     Dates: start: 20250516, end: 20250516
  4. PACLITAXEL [Suspect]
     Active Substance: PACLITAXEL
     Indication: Endometrial cancer
     Route: 042
     Dates: start: 20250418, end: 20250418
  5. PACLITAXEL [Suspect]
     Active Substance: PACLITAXEL
     Route: 042
     Dates: start: 20250516, end: 20250516

REACTIONS (2)
  - Febrile bone marrow aplasia [Fatal]
  - Septic shock [Fatal]

NARRATIVE: CASE EVENT DATE: 20250523
